FAERS Safety Report 15486960 (Version 12)
Quarter: 2021Q3

REPORT INFORMATION
  Report Type: Spontaneous
  Country: CA (occurrence: CA)
  Receive Date: 20181011
  Receipt Date: 20210929
  Transmission Date: 20211014
  Serious: Yes (Other)
  Sender: FDA-Public Use
  Company Number: CA-CELLTRION INC.-2018CA021910

PATIENT

DRUGS (43)
  1. INFLECTRA [Suspect]
     Active Substance: INFLIXIMAB-DYYB
     Dosage: 205 MG, EVERY 4 WEEKS
     Route: 042
     Dates: start: 20191114
  2. INFLECTRA [Suspect]
     Active Substance: INFLIXIMAB-DYYB
     Dosage: 205 MG, EVERY 4 WEEKS
     Route: 042
     Dates: start: 20191213
  3. ACTONEL [Concomitant]
     Active Substance: RISEDRONATE SODIUM
     Dosage: 150 MG, MONTHLY
     Route: 048
  4. ACETAMINOPHEN. [Concomitant]
     Active Substance: ACETAMINOPHEN
     Indication: PREMEDICATION
     Dosage: 650 MG, UNK
     Route: 048
     Dates: start: 20181015
  5. BUDESONIDE. [Concomitant]
     Active Substance: BUDESONIDE
     Dosage: 3 MG, FOR 2 WEEKS
  6. DIPHENHYDRAMINE. [Concomitant]
     Active Substance: DIPHENHYDRAMINE
     Dosage: 50 MG, UNK
     Route: 048
     Dates: start: 20190610
  7. METHOTREXATE. [Concomitant]
     Active Substance: METHOTREXATE
     Dosage: 7.5 MG, WEEKLY
     Route: 048
     Dates: start: 20181004
  8. VITALUX [Concomitant]
     Active Substance: MINERALS\VITAMINS
     Dosage: UNK, 1X/DAY
     Route: 048
  9. INFLECTRA [Suspect]
     Active Substance: INFLIXIMAB-DYYB
     Dosage: 220 MG, EVERY 4 WEEKS
     Route: 042
     Dates: start: 20181015, end: 20190314
  10. INFLECTRA [Suspect]
     Active Substance: INFLIXIMAB-DYYB
     Dosage: 220 MG, EVERY 4 WEEKS
     Route: 042
     Dates: start: 20181219
  11. INFLECTRA [Suspect]
     Active Substance: INFLIXIMAB-DYYB
     Dosage: 205 MG, EVERY 4 WEEKS
     Route: 042
     Dates: start: 20210528
  12. IBUPROFEN. [Concomitant]
     Active Substance: IBUPROFEN
     Indication: ANALGESIC THERAPY
     Dosage: 400 MG, 3X/DAY
     Route: 048
  13. INFLECTRA [Suspect]
     Active Substance: INFLIXIMAB-DYYB
     Dosage: 220 MG, EVERY 8 WEEKS
     Route: 041
     Dates: start: 20180523, end: 20180801
  14. INFLECTRA [Suspect]
     Active Substance: INFLIXIMAB-DYYB
     Dosage: 220 MG, EVERY 8 WEEKS
     Route: 042
     Dates: start: 20180801, end: 20180801
  15. INFLECTRA [Suspect]
     Active Substance: INFLIXIMAB-DYYB
     Dosage: 220 MG, EVERY 4 WEEKS
     Route: 042
     Dates: start: 20181116
  16. INFLECTRA [Suspect]
     Active Substance: INFLIXIMAB-DYYB
     Dosage: 220 MG, EVERY 4 WEEKS
     Route: 042
     Dates: start: 20190314
  17. INFLECTRA [Suspect]
     Active Substance: INFLIXIMAB-DYYB
     Dosage: 205 MG, EVERY 4 WEEKS
     Route: 042
     Dates: start: 20190410
  18. HYDROCORTISONE. [Concomitant]
     Active Substance: HYDROCORTISONE
     Indication: PREMEDICATION
     Dosage: 100 MG, UNK
     Route: 042
     Dates: start: 20181015
  19. INFLECTRA [Suspect]
     Active Substance: INFLIXIMAB-DYYB
     Dosage: 205 MG, EVERY 4 WEEKS
     Route: 042
     Dates: start: 20210917
  20. INFLECTRA [Suspect]
     Active Substance: INFLIXIMAB-DYYB
     Dosage: 220 MG, EVERY 4 WEEKS
     Route: 042
     Dates: start: 20190116
  21. INFLECTRA [Suspect]
     Active Substance: INFLIXIMAB-DYYB
     Dosage: 205 MG, EVERY 4 WEEKS
     Route: 042
     Dates: start: 20190610
  22. INFLECTRA [Suspect]
     Active Substance: INFLIXIMAB-DYYB
     Dosage: 205 MG, EVERY 4 WEEKS
     Route: 042
     Dates: start: 20201113
  23. INFLECTRA [Suspect]
     Active Substance: INFLIXIMAB-DYYB
     Dosage: 205 MG, EVERY 4 WEEKS
     Route: 042
     Dates: start: 20201211
  24. INFLECTRA [Suspect]
     Active Substance: INFLIXIMAB-DYYB
     Dosage: 205 MG, EVERY 4 WEEKS
     Route: 042
     Dates: start: 20210205
  25. INFLECTRA [Suspect]
     Active Substance: INFLIXIMAB-DYYB
     Dosage: 205 MG, EVERY 4 WEEKS
     Route: 042
     Dates: start: 20210305
  26. INFLECTRA [Suspect]
     Active Substance: INFLIXIMAB-DYYB
     Dosage: 205 MG, EVERY 4 WEEKS
     Route: 042
     Dates: start: 20210625
  27. AMOXICILLIN. [Concomitant]
     Active Substance: AMOXICILLIN
     Dosage: 500 MG, 3X/DAY
     Route: 048
     Dates: start: 2018
  28. HYDROCORTISONE. [Concomitant]
     Active Substance: HYDROCORTISONE
     Dosage: 100 MG, UNK
     Route: 042
     Dates: start: 20190610
  29. OLESTYR [Concomitant]
     Active Substance: CHOLESTYRAMINE
     Dosage: 3 DF, DAILY (3 PACKS/DAY)
     Route: 065
     Dates: start: 2014
  30. ZINC. [Concomitant]
     Active Substance: ZINC
     Dosage: 5 MG, 1X/DAY
     Route: 048
  31. INFLECTRA [Suspect]
     Active Substance: INFLIXIMAB-DYYB
     Indication: CROHN^S DISEASE
     Dosage: 225 MG, 0, 2, 6 WEEKS, THEN EVERY 8 WEEKS
     Route: 042
     Dates: start: 20170705, end: 20180328
  32. ACETAMINOPHEN. [Concomitant]
     Active Substance: ACETAMINOPHEN
     Dosage: 650 MG, UNK
     Route: 048
     Dates: start: 20190610
  33. CALCIUM [Concomitant]
     Active Substance: CALCIUM
     Dosage: 500 MG, 1X/DAY
     Route: 048
  34. ENTOCORT [Concomitant]
     Active Substance: BUDESONIDE
     Dosage: 3 MG, 2X/DAY
     Route: 048
     Dates: start: 2014, end: 2017
  35. POLYSPORIN [Concomitant]
     Active Substance: BACITRACIN ZINC\POLYMYXIN B SULFATE
     Dosage: UNK
     Route: 065
     Dates: start: 20170625
  36. FERROUS GLUCONATE [Concomitant]
     Active Substance: FERROUS GLUCONATE
     Dosage: 300 MG, 1X/DAY
     Route: 048
     Dates: start: 1984
  37. VITAMIN B12 [Concomitant]
     Active Substance: CYANOCOBALAMIN
     Dosage: 1200 UG, 1X/DAY
     Route: 048
  38. INFLECTRA [Suspect]
     Active Substance: INFLIXIMAB-DYYB
     Dosage: 220 MG, EVERY 8 WEEKS
     Route: 042
     Dates: start: 20180523, end: 20180523
  39. INFLECTRA [Suspect]
     Active Substance: INFLIXIMAB-DYYB
     Dosage: 205 MG, EVERY 4 WEEKS
     Route: 042
     Dates: start: 20190508
  40. INFLECTRA [Suspect]
     Active Substance: INFLIXIMAB-DYYB
     Dosage: 205 MG, EVERY 4 WEEKS
     Route: 042
     Dates: start: 20191018
  41. INFLECTRA [Suspect]
     Active Substance: INFLIXIMAB-DYYB
     Dosage: 205 MG, EVERY 4 WEEKS
     Route: 042
     Dates: start: 20210723
  42. DIPHENHYDRAMINE. [Concomitant]
     Active Substance: DIPHENHYDRAMINE
     Indication: PREMEDICATION
     Dosage: 25 MG, UNK
     Route: 048
     Dates: start: 20181015
  43. TRAVATAN [Concomitant]
     Active Substance: TRAVOPROST
     Dosage: 1 DROP IN EACH EYE AT NIGHT
     Route: 047

REACTIONS (21)
  - Pneumonia [Not Recovered/Not Resolved]
  - Skin lesion [Unknown]
  - Lower respiratory tract infection [Recovering/Resolving]
  - Cystitis [Recovered/Resolved]
  - Nasal inflammation [Unknown]
  - Chest discomfort [Not Recovered/Not Resolved]
  - Heart rate decreased [Unknown]
  - Pain [Unknown]
  - Rales [Unknown]
  - Chronic obstructive pulmonary disease [Unknown]
  - Sinusitis [Recovered/Resolved]
  - Skin infection [Recovering/Resolving]
  - Laryngitis [Recovered/Resolved]
  - Off label use [Unknown]
  - Inappropriate schedule of product administration [Unknown]
  - Intentional product use issue [Unknown]
  - Ear infection [Recovered/Resolved]
  - Skin mass [Not Recovered/Not Resolved]
  - Weight decreased [Unknown]
  - Condition aggravated [Recovered/Resolved]
  - Nasal disorder [Unknown]

NARRATIVE: CASE EVENT DATE: 20180801
